FAERS Safety Report 24104630 (Version 1)
Quarter: 2024Q3

REPORT INFORMATION
  Report Type: Spontaneous
  Country: RU (occurrence: RU)
  Receive Date: 20240717
  Receipt Date: 20240717
  Transmission Date: 20241016
  Serious: Yes (Other)
  Sender: SANDOZ
  Company Number: RU-SANDOZ-SDZ2024RU065506

PATIENT
  Sex: Female

DRUGS (3)
  1. AMOXICILLIN\CLAVULANATE POTASSIUM [Suspect]
     Active Substance: AMOXICILLIN\CLAVULANATE POTASSIUM
     Indication: Antibiotic therapy
     Dosage: UNK
     Route: 042
  2. HERBALS [Suspect]
     Active Substance: HERBALS
     Indication: Pyelonephritis chronic
     Dosage: 2 UNKNOWN, 3 TIMES PER DAY
     Route: 065
  3. NADROPARIN CALCIUM [Suspect]
     Active Substance: NADROPARIN CALCIUM
     Indication: Antiphospholipid syndrome
     Dosage: UNK, 0.3 BID, (2 TIMES EVERY 12  HOURS)
     Route: 065

REACTIONS (3)
  - Premature labour [Unknown]
  - Exposure during pregnancy [Unknown]
  - Product use in unapproved indication [Unknown]
